FAERS Safety Report 17438971 (Version 1)
Quarter: 2020Q1

REPORT INFORMATION
  Report Type: Spontaneous
  Country: ES (occurrence: ES)
  Receive Date: 20200220
  Receipt Date: 20200220
  Transmission Date: 20200409
  Serious: Yes (Hospitalization)
  Sender: FDA-Public Use
  Company Number: ES-TEVA-2020-ES-1188605

PATIENT
  Age: 70 Year
  Sex: Male

DRUGS (12)
  1. ROSUVASTATINA (8215A) [Suspect]
     Active Substance: ROSUVASTATIN
     Indication: DYSLIPIDAEMIA
     Dosage: 20 MG
     Route: 048
     Dates: start: 20181205, end: 20200107
  2. EZETIMIBA (7432A) [Suspect]
     Active Substance: EZETIMIBE
     Indication: DYSLIPIDAEMIA
     Dosage: 10 MG
     Route: 048
     Dates: start: 20190620, end: 20200107
  3. EUTIROX 100 MICROGRAMOS COMPRIMIDOS , 100 COMPRIMIDOS [Concomitant]
     Active Substance: LEVOTHYROXINE SODIUM
     Indication: HYPOPITUITARISM
     Route: 048
     Dates: start: 20200124
  4. ESBRIET [Suspect]
     Active Substance: PIRFENIDONE
     Indication: IDIOPATHIC PULMONARY FIBROSIS
     Dosage: 801 MG
     Route: 048
     Dates: start: 20191003, end: 20200107
  5. EBASTEL 10 MG COMPRIMIDOS RECUBIERTOS CON PELICULA, 20 COMPRIMIDOS [Concomitant]
     Dosage: 10
     Route: 048
     Dates: start: 20190530
  6. LERCANIDIPINO (2757A) [Concomitant]
     Indication: HYPERTENSION
     Dosage: 10
     Dates: start: 20190426
  7. TESTEX PROLONGATUM 250 MG/2 ML SOLUCION INYECTABLE , 1 AMPOLLA DE 2 ML [Concomitant]
     Indication: HYPOPITUITARISM
     Dates: start: 20161014
  8. BISOPROLOL (2328A) [Concomitant]
     Active Substance: BISOPROLOL
     Dosage: 2.5
     Route: 048
     Dates: start: 20180803
  9. ADIRO [Concomitant]
     Active Substance: ASPIRIN
     Indication: MYOCARDIAL ISCHAEMIA
     Dosage: 100
     Route: 048
     Dates: start: 20161014
  10. PANTOPRAZOL (7275A) [Concomitant]
     Active Substance: PANTOPRAZOLE
     Dosage: 20
     Route: 048
     Dates: start: 20191008
  11. HIDROALTESONA COMPRIMIDOS, 10 [Concomitant]
     Indication: HYPOPITUITARISM
     Dosage: 20
     Route: 048
     Dates: start: 20081128
  12. RAMIPRIL (2497A) [Concomitant]
     Active Substance: RAMIPRIL
     Indication: HYPERTENSION
     Dosage: 10
     Route: 048
     Dates: start: 20181116

REACTIONS (3)
  - Hepatitis [Recovering/Resolving]
  - Hypocoagulable state [Recovered/Resolved]
  - Hyperbilirubinaemia [Recovering/Resolving]

NARRATIVE: CASE EVENT DATE: 20200107
